FAERS Safety Report 9528260 (Version 3)
Quarter: 2013Q4

REPORT INFORMATION
  Report Type: Spontaneous
  Country: JP (occurrence: JP)
  Receive Date: 20130917
  Receipt Date: 20131009
  Transmission Date: 20140711
  Serious: Yes (Other)
  Sender: FDA-Public Use
  Company Number: PHHY2013JP101648

PATIENT
  Age: 70 Year
  Sex: Female

DRUGS (2)
  1. FAMVIR [Suspect]
     Indication: HERPES ZOSTER
     Dosage: 500 MG, TID
     Route: 048
     Dates: start: 20130902, end: 20130904
  2. FENAZOL [Concomitant]
     Dosage: UNK UKN, UNK
     Route: 061
     Dates: start: 20130902

REACTIONS (2)
  - Loss of consciousness [Recovered/Resolved]
  - Dizziness postural [Recovered/Resolved]
